FAERS Safety Report 6669654-3 (Version None)
Quarter: 2010Q2

REPORT INFORMATION
  Report Type: 
  Country: None (occurrence: None)
  Receive Date: 20100406
  Receipt Date: 20100323
  Transmission Date: 20101027
  Serious: Yes (Hospitalization)
  Sender: FDA-Public Use
  Company Number: GR-MYLANLABS-2010S1004894

PATIENT
  Age: 22 Year
  Sex: Male

DRUGS (8)
  1. METHOTREXATE [Suspect]
     Indication: DIFFUSE LARGE B-CELL LYMPHOMA
  2. FOLINIC ACID [Interacting]
     Indication: DIFFUSE LARGE B-CELL LYMPHOMA
  3. DOXORUBICIN HCL [Interacting]
     Indication: DIFFUSE LARGE B-CELL LYMPHOMA
  4. CYCLOPHOSPHAMIDE [Interacting]
     Indication: DIFFUSE LARGE B-CELL LYMPHOMA
  5. VINCRISTINE [Interacting]
     Indication: DIFFUSE LARGE B-CELL LYMPHOMA
  6. BLEOMYCIN SULFATE [Interacting]
     Indication: DIFFUSE LARGE B-CELL LYMPHOMA
  7. PREDNISONE TAB [Interacting]
     Indication: DIFFUSE LARGE B-CELL LYMPHOMA
  8. METHYLPREDNISOLONE [Interacting]
     Indication: DIFFUSE LARGE B-CELL LYMPHOMA
     Dosage: TAPERING DOSE
     Route: 048

REACTIONS (4)
  - BONE MARROW NECROSIS [None]
  - CONUS MEDULLARIS SYNDROME [None]
  - DRUG INTERACTION [None]
  - FAT EMBOLISM [None]
